FAERS Safety Report 16257972 (Version 1)
Quarter: 2019Q2

REPORT INFORMATION
  Report Type: Spontaneous
  Country: US (occurrence: US)
  Receive Date: 20190430
  Receipt Date: 20190430
  Transmission Date: 20190711
  Serious: No
  Sender: FDA-Public Use
  Company Number: US-TEVA-2019-US-1045074

PATIENT
  Sex: Male

DRUGS (2)
  1. DETROL [Concomitant]
     Active Substance: TOLTERODINE TARTRATE
  2. OXYBUTYNIN. [Suspect]
     Active Substance: OXYBUTYNIN CHLORIDE
     Indication: INCONTINENCE
     Dosage: 10 MILLIGRAM DAILY;

REACTIONS (3)
  - Dry throat [Unknown]
  - Drug ineffective [Unknown]
  - Dry mouth [Unknown]
